FAERS Safety Report 25392067 (Version 2)
Quarter: 2025Q3

REPORT INFORMATION
  Report Type: Report from Study
  Country: EU (occurrence: EU)
  Receive Date: 20250603
  Receipt Date: 20250714
  Transmission Date: 20251021
  Serious: Yes (Hospitalization)
  Sender: MYLAN
  Company Number: EU-ROCHE-10000286310

PATIENT
  Age: 62 Year

DRUGS (2)
  1. GEMCITABINE [Suspect]
     Active Substance: GEMCITABINE
     Indication: Neoplasm malignant
     Dosage: 1000 MILLIGRAM/SQ. METER, Q3W, RECEIVED MOST RECENT DOSE OF CANCER TREATMENT PRIOR TO AE/SAE ONSET.
     Dates: start: 20250207
  2. CARBOPLATIN [Suspect]
     Active Substance: CARBOPLATIN
     Indication: Neoplasm malignant
     Dosage: 587.33 MILLIGRAM, Q3W, RECEIVED MOST RECENT DOSE OF CANCER TREATMENT PRIOR TO AE/SAE ONSET.
     Dates: start: 20250207

REACTIONS (2)
  - Inflammatory marker increased [Not Recovered/Not Resolved]
  - Pain management [Recovering/Resolving]

NARRATIVE: CASE EVENT DATE: 20250514
